FAERS Safety Report 14658048 (Version 1)
Quarter: 2018Q1

REPORT INFORMATION
  Report Type: Spontaneous
  Country: US (occurrence: US)
  Receive Date: 20180320
  Receipt Date: 20180320
  Transmission Date: 20180509
  Serious: No
  Sender: FDA-Public Use
  Company Number: US-TEVA-757528ACC

PATIENT
  Sex: Female

DRUGS (1)
  1. NORTRIPTYLINE HYDROCHLORIDE. [Suspect]
     Active Substance: NORTRIPTYLINE HYDROCHLORIDE
     Indication: MIGRAINE
     Dates: end: 2017

REACTIONS (4)
  - Dysgeusia [Recovered/Resolved]
  - Sensation of foreign body [Recovered/Resolved]
  - Adverse event [Recovered/Resolved]
  - Product substitution issue [Unknown]
